FAERS Safety Report 4818505-8 (Version None)
Quarter: 2005Q4

REPORT INFORMATION
  Report Type: 
  Country: None (occurrence: None)
  Receive Date: 20051031
  Receipt Date: 20051020
  Transmission Date: 20060501
  Serious: Yes (Death, Other)
  Sender: FDA-Public Use
  Company Number: 2005138887

PATIENT
  Age: 57 Year
  Sex: Male

DRUGS (5)
  1. LIPITOR [Suspect]
     Indication: BLOOD CHOLESTEROL INCREASED
     Dosage: 1 IN 1 D
  2. ACCUPRIL [Suspect]
     Indication: HYPERTENSION
     Dosage: 40 MG (40 MG, 1 IN 1 D)
  3. FUROSEMIDE [Concomitant]
  4. HYDROCHLOROTHIAZIDE [Concomitant]
  5. ALL OTHER THERAPEUTIC PRODUCTS (ALL OTHER THERAPEUTIC PRODUCTS) [Concomitant]

REACTIONS (4)
  - CARDIAC FAILURE [None]
  - CARDIAC PACEMAKER INSERTION [None]
  - MYOCARDIAL INFARCTION [None]
  - PROSTATE CANCER [None]
